FAERS Safety Report 8711400 (Version 2)
Quarter: 2013Q3

REPORT INFORMATION
  Report Type: Spontaneous
  Country: AT (occurrence: AT)
  Receive Date: 20120807
  Receipt Date: 20130821
  Transmission Date: 20140515
  Serious: Yes (Hospitalization, Other)
  Sender: FDA-Public Use
  Company Number: AT-TEVA-351249ISR

PATIENT
  Age: 22 Year
  Sex: Female

DRUGS (1)
  1. FUROSEMIDE [Suspect]
     Dosage: 250 MILLIGRAM DAILY;
     Route: 065

REACTIONS (9)
  - Rhabdomyolysis [Recovering/Resolving]
  - Metabolic alkalosis [Recovering/Resolving]
  - Renal failure [Recovering/Resolving]
  - Electrocardiogram abnormal [Recovered/Resolved]
  - Drug abuse [Recovering/Resolving]
  - Hypokalaemia [Recovering/Resolving]
  - Hyponatraemia [Recovering/Resolving]
  - Vomiting [Unknown]
  - Diarrhoea [Unknown]
